FAERS Safety Report 13192160 (Version 3)
Quarter: 2017Q2

REPORT INFORMATION
  Report Type: Spontaneous
  Country: GB (occurrence: GB)
  Receive Date: 20170207
  Receipt Date: 20170522
  Transmission Date: 20170830
  Serious: Yes (Death, Hospitalization, Disabling, Other)
  Sender: FDA-Public Use
  Company Number: GB-009507513-1702GBR002029

PATIENT
  Sex: Male

DRUGS (6)
  1. SINEMET PLUS [Suspect]
     Active Substance: CARBIDOPA\LEVODOPA
     Dosage: 2 SINEMET PLUS TABLETS INSTEAD OF 1
     Route: 048
     Dates: start: 2014
  2. SINEMET PLUS [Suspect]
     Active Substance: CARBIDOPA\LEVODOPA
     Dosage: 2 SINEMET PLUS TABLETS INSTEAD OF 2 SINEMET CR
     Route: 048
     Dates: start: 2014
  3. SINEMET PLUS [Suspect]
     Active Substance: CARBIDOPA\LEVODOPA
     Indication: PRODUCT USED FOR UNKNOWN INDICATION
     Dosage: 1 DF, IN THE MORNING
     Route: 048
  4. SINEMET PLUS [Suspect]
     Active Substance: CARBIDOPA\LEVODOPA
     Dosage: 2 TABLETS IN THE NIGHT AND 2 IN THE MORNING
     Route: 048
     Dates: start: 201407, end: 201407
  5. SINEMET CR [Suspect]
     Active Substance: CARBIDOPA\LEVODOPA
     Indication: PRODUCT USED FOR UNKNOWN INDICATION
     Dosage: TWO 1/2 TABLETS AT NIGHT
     Route: 048
  6. MORPHINE [Concomitant]
     Active Substance: MORPHINE
     Dosage: UNK
     Dates: start: 201407

REACTIONS (11)
  - Death [Fatal]
  - Anxiety [Unknown]
  - Wrong drug administered [Unknown]
  - Cardiac tamponade [Unknown]
  - Cardiac arrest [Unknown]
  - Vasodilatation [Unknown]
  - Incorrect dosage administered [Unknown]
  - Surgery [Unknown]
  - Coma [Unknown]
  - Overdose [Unknown]
  - Dyskinesia [Unknown]

NARRATIVE: CASE EVENT DATE: 201407
